FAERS Safety Report 5030006-3 (Version None)
Quarter: 2006Q2

REPORT INFORMATION
  Report Type: 
  Country: None (occurrence: None)
  Receive Date: 20060614
  Receipt Date: 20060517
  Transmission Date: 20061013
  Serious: Yes (Hospitalization)
  Sender: FDA-Public Use
  Company Number: AU200605005570

PATIENT
  Age: 76 Year
  Sex: Male

DRUGS (9)
  1. GEMCITABINE HYDROCHLORIDE (GEMCITABINE HYDROCHLORIDE) VIAL [Suspect]
     Indication: PANCREATIC CARCINOMA METASTATIC
  2. ASPIRIN [Concomitant]
  3. RANITIDINE [Concomitant]
  4. DOSULEPIN (DOSULEPIN) [Concomitant]
  5. SIMVASTATIN [Concomitant]
  6. AMLODIPINE [Concomitant]
  7. DOMPERIDONE (DOMPERIDONE) [Concomitant]
  8. ENOXAPARIN SODIUM [Concomitant]
  9. MORPHINE SULFATE [Concomitant]

REACTIONS (6)
  - DECREASED APPETITE [None]
  - DEHYDRATION [None]
  - DIARRHOEA [None]
  - DYSPNOEA [None]
  - LETHARGY [None]
  - PYREXIA [None]
